FAERS Safety Report 9127066 (Version 1)
Quarter: 2013Q1

REPORT INFORMATION
  Report Type: Spontaneous
  Country: ES (occurrence: ES)
  Receive Date: 20130122
  Receipt Date: 20130122
  Transmission Date: 20140127
  Serious: Yes (Death, Other)
  Sender: FDA-Public Use
  Company Number: PHHY2013ES005172

PATIENT
  Age: 72 Year
  Sex: Male

DRUGS (1)
  1. ZOLEDRONIC ACID [Suspect]
     Indication: BREAST CANCER METASTATIC
     Dosage: 4 MG, PER MONTH
     Route: 042

REACTIONS (4)
  - Neoplasm [Fatal]
  - Osteonecrosis of jaw [Unknown]
  - Actinomycosis [Unknown]
  - Primary sequestrum [Unknown]
